FAERS Safety Report 9221941 (Version 1)
Quarter: 2013Q2

REPORT INFORMATION
  Report Type: Spontaneous
  Country: US (occurrence: US)
  Receive Date: 20130410
  Receipt Date: 20130410
  Transmission Date: 20140414
  Serious: No
  Sender: FDA-Public Use
  Company Number: US-PFIZER INC-2013108887

PATIENT
  Age: 45 Year
  Sex: Male
  Weight: 136.05 kg

DRUGS (5)
  1. PROTONIX [Suspect]
     Indication: GASTROOESOPHAGEAL REFLUX DISEASE
     Dosage: 40 MG, 2X/DAY
     Route: 048
  2. PROTONIX [Suspect]
     Indication: BARRETT^S OESOPHAGUS
     Dosage: 40 MG, 1X/DAY
     Route: 048
  3. FLUOXETINE [Concomitant]
     Dosage: UNK
  4. ASPIRIN [Concomitant]
     Dosage: 325 MG, 1X/DAY
  5. MULTIVITAMINS [Concomitant]
     Dosage: UNK

REACTIONS (6)
  - Blood cholesterol increased [Unknown]
  - Blood triglycerides increased [Unknown]
  - Hypertension [Unknown]
  - Back injury [Unknown]
  - Back pain [Unknown]
  - Drug screen false positive [Unknown]
